FAERS Safety Report 10769515 (Version 3)
Quarter: 2016Q2

REPORT INFORMATION
  Report Type: Spontaneous
  Country: US (occurrence: US)
  Receive Date: 20150206
  Receipt Date: 20160517
  Transmission Date: 20160815
  Serious: Yes (Hospitalization)
  Sender: FDA-Public Use
  Company Number: US-009507513-1502USA002230

PATIENT
  Sex: Male

DRUGS (3)
  1. VICODIN [Concomitant]
     Active Substance: ACETAMINOPHEN\HYDROCODONE BITARTRATE
     Indication: BACK PAIN
     Dosage: UNK, UNKNOWN
     Route: 065
     Dates: start: 1998
  2. PROPECIA [Suspect]
     Active Substance: FINASTERIDE
     Indication: ALOPECIA
     Dosage: 1 MG, QD
     Route: 048
     Dates: start: 200706, end: 20080307
  3. FINASTERIDE. [Suspect]
     Active Substance: FINASTERIDE
     Indication: ALOPECIA
     Dosage: 1 MG, UNKNOWN
     Route: 048
     Dates: start: 2007, end: 200803

REACTIONS (17)
  - Erectile dysfunction [Not Recovered/Not Resolved]
  - Exostosis [Unknown]
  - Abdominal hernia [Unknown]
  - Acrochordon [Unknown]
  - Anxiety [Unknown]
  - Drug ineffective [Unknown]
  - Hypercholesterolaemia [Not Recovered/Not Resolved]
  - Rosacea [Unknown]
  - Arthralgia [Unknown]
  - Osteoarthritis [Unknown]
  - Sexual dysfunction [Not Recovered/Not Resolved]
  - Eczema [Recovering/Resolving]
  - Mental status changes [Unknown]
  - Quality of life decreased [Not Recovered/Not Resolved]
  - Hormone level abnormal [Unknown]
  - Myalgia [Not Recovered/Not Resolved]
  - Plantar fascial fibromatosis [Unknown]

NARRATIVE: CASE EVENT DATE: 2007
